FAERS Safety Report 5201940-6 (Version None)
Quarter: 2007Q1

REPORT INFORMATION
  Report Type: 
  Country: None (occurrence: None)
  Receive Date: 20070104
  Receipt Date: 20061222
  Transmission Date: 20070707
  Serious: Yes (Life-Threatening, Hospitalization, Other)
  Sender: FDA-Public Use
  Company Number: 151258ISR

PATIENT
  Age: 12 Year
  Sex: Male

DRUGS (3)
  1. DICLOFENAC SODIUM [Suspect]
     Indication: PAIN
  2. MORPHINE [Suspect]
     Indication: PAIN
  3. PARACETAMOL [Suspect]
     Indication: PAIN

REACTIONS (3)
  - COLITIS ULCERATIVE [None]
  - DRUG INEFFECTIVE [None]
  - MEGACOLON [None]
